FAERS Safety Report 24524717 (Version 1)
Quarter: 2024Q4

REPORT INFORMATION
  Report Type: Spontaneous
  Country: US (occurrence: US)
  Receive Date: 20241019
  Receipt Date: 20241019
  Transmission Date: 20250115
  Serious: Yes (Other)
  Sender: AUROBINDO
  Company Number: US-AUROBINDO-AUR-APL-2024-050328

PATIENT
  Age: 62 Year
  Sex: Male

DRUGS (5)
  1. CLINDAMYCIN [Suspect]
     Active Substance: CLINDAMYCIN
     Indication: Pneumonia
     Dosage: UNK
     Route: 065
  2. CLINDAMYCIN [Suspect]
     Active Substance: CLINDAMYCIN
     Indication: Toxic shock syndrome streptococcal
  3. PENICILLIN [Suspect]
     Active Substance: PENICILLIN
     Indication: Pneumonia
     Dosage: UNK
     Route: 065
  4. PENICILLIN [Suspect]
     Active Substance: PENICILLIN
     Indication: Toxic shock syndrome streptococcal
  5. IMMUNE GLOBULIN [Concomitant]
     Indication: Toxic shock syndrome streptococcal
     Dosage: UNK
     Route: 065

REACTIONS (1)
  - Drug ineffective [Unknown]
